FAERS Safety Report 17436631 (Version 2)
Quarter: 2020Q2

REPORT INFORMATION
  Report Type: Spontaneous
  Country: US (occurrence: US)
  Receive Date: 20200219
  Receipt Date: 20200401
  Transmission Date: 20200713
  Serious: Yes (Other)
  Sender: FDA-Public Use
  Company Number: US-ASTRAZENECA-2020SE22918

PATIENT
  Age: 28859 Day
  Sex: Female
  Weight: 90.7 kg

DRUGS (9)
  1. ASPIRIN. [Concomitant]
     Active Substance: ASPIRIN
  2. NOVOLIN N [Concomitant]
     Active Substance: INSULIN HUMAN
     Indication: DIABETES MELLITUS
  3. PRAVASTATIN. [Concomitant]
     Active Substance: PRAVASTATIN
  4. FUROSEMIDE. [Concomitant]
     Active Substance: FUROSEMIDE
  5. INSULIN [Concomitant]
     Active Substance: INSULIN NOS
  6. LOSARTEN [Concomitant]
     Active Substance: LOSARTAN
     Dosage: 100.0MG UNKNOWN
  7. BYDUREON BCISE [Suspect]
     Active Substance: EXENATIDE
     Indication: TYPE 2 DIABETES MELLITUS
     Dosage: ONCE A WEEK
     Route: 058
  8. POSTASSIUM CHLORIDE [Concomitant]
     Dosage: 10.0MG UNKNOWN
  9. ROPINEROLE [Concomitant]
     Active Substance: ROPINIROLE
     Indication: RESTLESS LEGS SYNDROME

REACTIONS (5)
  - Abdominal discomfort [Unknown]
  - Cardiac failure congestive [Unknown]
  - Incorrect dose administered by device [Unknown]
  - Device leakage [Unknown]
  - Haemorrhage [Unknown]

NARRATIVE: CASE EVENT DATE: 20200209
